FAERS Safety Report 5339617-9 (Version None)
Quarter: 2007Q2

REPORT INFORMATION
  Report Type: 
  Country: None (occurrence: None)
  Receive Date: 20070525
  Receipt Date: 20070525
  Transmission Date: 20071010
  Serious: Yes (Hospitalization)
  Sender: FDA-Public Use
  Company Number: None

PATIENT
  Sex: Male
  Weight: 79.9 kg

DRUGS (3)
  1. THALOMID [Suspect]
     Dosage: 5000 MG
  2. ACCUTANE [Suspect]
     Dosage: 3360 MG
  3. TEMOZOLOMIDE [Suspect]
     Dosage: 4200 MG

REACTIONS (6)
  - FIBRIN D DIMER INCREASED [None]
  - PAIN [None]
  - PLEURAL EFFUSION [None]
  - PNEUMONIA [None]
  - PULMONARY ALVEOLAR HAEMORRHAGE [None]
  - PULMONARY EMBOLISM [None]
